FAERS Safety Report 10163242 (Version 1)
Quarter: 2014Q2

REPORT INFORMATION
  Report Type: Spontaneous
  Country: US (occurrence: US)
  Receive Date: 20140509
  Receipt Date: 20140509
  Transmission Date: 20141212
  Serious: Yes (Other)
  Sender: FDA-Public Use
  Company Number: US-BRISTOL-MYERS SQUIBB COMPANY-20725636

PATIENT
  Age: 77 Year
  Sex: Female

DRUGS (6)
  1. BYETTA [Suspect]
     Indication: TYPE 2 DIABETES MELLITUS
     Dosage: STARTED 8 YEARS AGO
     Dates: end: 20140208
  2. ACTONEL [Concomitant]
     Route: 048
  3. AVAPRO [Concomitant]
     Route: 048
  4. SINGULAIR [Concomitant]
     Route: 048
  5. LETROZOLE [Concomitant]
     Route: 048
  6. ZYRTEC [Concomitant]
     Route: 048

REACTIONS (2)
  - Breast cancer [Recovered/Resolved]
  - Nausea [Recovered/Resolved]
